FAERS Safety Report 9915616 (Version 1)
Quarter: 2014Q1

REPORT INFORMATION
  Report Type: Spontaneous
  Country: GB (occurrence: None)
  Receive Date: 20140218
  Receipt Date: 20140218
  Transmission Date: 20141002
  Serious: Yes (Hospitalization)
  Sender: FDA-Public Use
  Company Number: FK201400441

PATIENT
  Age: 70 Year
  Sex: Male

DRUGS (10)
  1. SODIUM CHLORIDE [Suspect]
     Indication: ROTATOR CUFF SYNDROME
     Route: 014
     Dates: start: 20140102
  2. KENALOG [Suspect]
     Indication: ROTATOR CUFF SYNDROME
     Route: 014
     Dates: start: 20140102
  3. LANSOPRAZOLE [Suspect]
     Indication: PRODUCT USED FOR UNKNOWN INDICATION
  4. BISOPROLOL (BISOPROLOL) (BISOPROLOL) [Concomitant]
  5. METFORMIN (METFORMIN) (METFORMIN) [Concomitant]
  6. PAROXETINE (PAROXETINE) (PAROXETINE) [Concomitant]
  7. PREGABALIN (PREGABALIN) (PREGABALIN) [Concomitant]
  8. SIMVASTATIN (SIMVASTATIN) (SIMVASTATIN) [Concomitant]
  9. WARFARIN (WARFARIN) (WARFARIN) [Concomitant]
  10. ZAPAIN (PANADEINE CO) (PANADEINE CO) [Concomitant]

REACTIONS (2)
  - Arthritis [None]
  - Musculoskeletal pain [None]
